FAERS Safety Report 4572042-7 (Version None)
Quarter: 2005Q1

REPORT INFORMATION
  Report Type: 
  Country: None (occurrence: None)
  Receive Date: 20050202
  Receipt Date: 20050118
  Transmission Date: 20050727
  Serious: Yes (Other)
  Sender: FDA-Public Use
  Company Number: USA041183811

PATIENT
  Age: 20 Year
  Sex: Male

DRUGS (4)
  1. STRATTERA [Suspect]
     Indication: ATTENTION DEFICIT/HYPERACTIVITY DISORDER
     Dosage: 80 MG
  2. ADVAIR DISKUS 100/50 [Concomitant]
  3. PROVENTIL (SALBUTAMOL SULFATE) [Concomitant]
  4. LEXAPRO [Concomitant]

REACTIONS (7)
  - ASTHENIA [None]
  - CONFUSIONAL STATE [None]
  - GRAND MAL CONVULSION [None]
  - HEADACHE [None]
  - HYPOKALAEMIA [None]
  - LOSS OF CONSCIOUSNESS [None]
  - POSTICTAL STATE [None]
